FAERS Safety Report 24640160 (Version 1)
Quarter: 2024Q4

REPORT INFORMATION
  Report Type: Spontaneous
  Country: US (occurrence: US)
  Receive Date: 20241120
  Receipt Date: 20241120
  Transmission Date: 20250115
  Serious: Yes (Hospitalization, Other)
  Sender: NOVO NORDISK
  Company Number: US-NOVOPROD-1319754

PATIENT
  Age: 54 Year
  Sex: Male

DRUGS (1)
  1. OZEMPIC [Suspect]
     Active Substance: SEMAGLUTIDE
     Indication: Type 2 diabetes mellitus
     Dosage: 0.5 MG, QW
     Route: 058
     Dates: start: 20240216, end: 2024

REACTIONS (14)
  - Ischaemic stroke [Unknown]
  - Cerebrovascular accident [Unknown]
  - Large intestinal ulcer [Unknown]
  - Intestinal mass [Unknown]
  - Pneumonitis [Unknown]
  - Large intestine infection [Unknown]
  - Pyrexia [Unknown]
  - Hypotension [Unknown]
  - Electrolyte depletion [Unknown]
  - Colitis [Unknown]
  - Dehydration [Unknown]
  - Heart rate increased [Unknown]
  - Abdominal pain lower [Unknown]
  - Nausea [Unknown]

NARRATIVE: CASE EVENT DATE: 20240101
